FAERS Safety Report 12721478 (Version 1)
Quarter: 2016Q3

REPORT INFORMATION
  Report Type: Other
  Country: US (occurrence: US)
  Receive Date: 20160907
  Receipt Date: 20160907
  Transmission Date: 20161109
  Serious: No
  Sender: FDA-Public Use
  Company Number: US-COL_22020_2016

PATIENT
  Sex: Female

DRUGS (2)
  1. COLGATE TOTAL CLEAN MINT [Suspect]
     Active Substance: SODIUM FLUORIDE\TRICLOSAN
     Dosage: A LITTLE MORE THAN A PEA SIZE/ONE TIME ONLY/
     Route: 048
  2. COLGATE TOTAL CLEAN MINT [Suspect]
     Active Substance: SODIUM FLUORIDE\TRICLOSAN
     Indication: PRODUCT USED FOR UNKNOWN INDICATION
     Dosage: A LITTLE MORE THAN A PEA SIZE/ONE TIME ONLY/
     Route: 048
     Dates: start: 20160203, end: 20160203

REACTIONS (2)
  - Oral discomfort [Recovering/Resolving]
  - Lip disorder [Recovering/Resolving]

NARRATIVE: CASE EVENT DATE: 20160203
